FAERS Safety Report 5577782-9 (Version None)
Quarter: 2007Q4

REPORT INFORMATION
  Report Type: 
  Country: None (occurrence: None)
  Receive Date: 20071231
  Receipt Date: 20071218
  Transmission Date: 20080405
  Serious: Yes (Hospitalization)
  Sender: FDA-Public Use
  Company Number: FR-BRISTOL-MYERS SQUIBB COMPANY-14026934

PATIENT
  Age: 75 Year
  Sex: Male

DRUGS (12)
  1. GLUCOPHAGE [Suspect]
     Route: 048
     Dates: end: 20071005
  2. ACOMPLIA [Suspect]
     Route: 048
     Dates: start: 20070501, end: 20071005
  3. TAHOR [Suspect]
     Route: 048
     Dates: start: 20070501, end: 20071005
  4. AMARYL [Suspect]
     Route: 048
     Dates: end: 20071009
  5. MONOZECLAR [Concomitant]
     Dates: start: 20071005, end: 20071008
  6. PLAVIX [Concomitant]
     Route: 048
     Dates: start: 20070501
  7. KARDEGIC [Concomitant]
     Route: 048
     Dates: start: 20070501
  8. COVERSYL [Concomitant]
     Route: 048
     Dates: end: 20071009
  9. INIPOMP [Concomitant]
     Route: 048
     Dates: end: 20071009
  10. CARTEOLOL HCL [Concomitant]
     Route: 047
  11. XALATAN [Concomitant]
  12. PRESERVISION AREDS [Concomitant]

REACTIONS (1)
  - CYTOLYTIC HEPATITIS [None]
